FAERS Safety Report 4967772-9 (Version None)
Quarter: 2006Q2

REPORT INFORMATION
  Report Type: 
  Country: None (occurrence: None)
  Receive Date: 20060410
  Receipt Date: 20050228
  Transmission Date: 20061013
  Serious: Yes (Hospitalization, Other)
  Sender: FDA-Public Use
  Company Number: US-MERCK-0503USA00265

PATIENT
  Age: 60 Year
  Sex: Female
  Weight: 76 kg

DRUGS (9)
  1. VIOXX [Suspect]
     Indication: ARTHRITIS
     Route: 048
     Dates: start: 20000420, end: 20001101
  2. LOTREL [Concomitant]
     Route: 065
  3. TYLENOL (CAPLET) [Concomitant]
     Route: 065
  4. CIMETIDINE [Concomitant]
     Route: 065
  5. IBUPROFEN [Concomitant]
     Route: 065
  6. DYAZIDE [Concomitant]
     Route: 065
  7. PLAVIX [Concomitant]
     Route: 065
  8. PROCARDIA [Concomitant]
     Route: 065
  9. TYLENOL W/ CODEINE NO. 3 [Concomitant]
     Route: 065

REACTIONS (26)
  - ASTHMA [None]
  - BACK PAIN [None]
  - BALANCE DISORDER [None]
  - CARDIAC FAILURE CONGESTIVE [None]
  - CARDIOVASCULAR DISORDER [None]
  - CONDITION AGGRAVATED [None]
  - CONSTIPATION [None]
  - CORONARY ARTERY DISEASE [None]
  - DEPRESSION [None]
  - DRUG INEFFECTIVE [None]
  - EMOTIONAL DISTRESS [None]
  - FALL [None]
  - GASTROOESOPHAGEAL REFLUX DISEASE [None]
  - HYPERTENSION [None]
  - MICTURITION URGENCY [None]
  - MUSCLE SPASMS [None]
  - MYOCARDIAL INFARCTION [None]
  - OBSTRUCTION GASTRIC [None]
  - PARAESTHESIA [None]
  - PARONYCHIA [None]
  - PNEUMONIA [None]
  - RESPIRATORY DISTRESS [None]
  - ROAD TRAFFIC ACCIDENT [None]
  - SHOULDER PAIN [None]
  - SINUS TACHYCARDIA [None]
  - VICTIM OF SPOUSAL ABUSE [None]
